FAERS Safety Report 6667847-2 (Version None)
Quarter: 2010Q2

REPORT INFORMATION
  Report Type: 
  Country: None (occurrence: None)
  Receive Date: 20100405
  Receipt Date: 20100319
  Transmission Date: 20101027
  Serious: Yes (Hospitalization, Other)
  Sender: FDA-Public Use
  Company Number: PHHY2010DE17124

PATIENT
  Sex: Male

DRUGS (13)
  1. TASIGNA [Suspect]
     Indication: CHRONIC MYELOID LEUKAEMIA
     Dosage: 800 MG/DAY
     Route: 048
     Dates: start: 20080116, end: 20080709
  2. TASIGNA [Suspect]
     Dosage: 400 MG/DAY
     Route: 048
     Dates: start: 20080709, end: 20090812
  3. NEBILET [Concomitant]
     Dosage: UNK
     Dates: start: 20081226, end: 20090603
  4. DELIX [Concomitant]
     Dosage: UNK
     Dates: start: 20090108, end: 20090812
  5. TRAMAL [Concomitant]
     Dosage: UNK
     Dates: start: 20080108
  6. ALPROSTADIL [Concomitant]
     Dosage: UNK
     Dates: start: 20090209, end: 20090226
  7. EZETROL [Concomitant]
     Dosage: UNK
     Dates: start: 20090209, end: 20090506
  8. PANTOPRAZOLE SODIUM [Concomitant]
     Dosage: UNK
     Dates: start: 20070320
  9. ASPIRIN [Concomitant]
     Dosage: UNK
     Dates: start: 20090812
  10. NEBIVOLOL HCL [Concomitant]
     Dosage: UNK
     Dates: start: 20090812
  11. AMLODIPINE [Concomitant]
     Dosage: UNK
     Dates: start: 20090812
  12. CLOPIDOGREL [Concomitant]
     Dosage: UNK
     Dates: start: 20090210
  13. TINZAPARIN [Concomitant]
     Dosage: UNK
     Dates: start: 20090108, end: 20090803

REACTIONS (17)
  - ABDOMINAL PAIN UPPER [None]
  - ANEURYSMECTOMY [None]
  - ANGINA PECTORIS [None]
  - ARTERIAL GRAFT [None]
  - ARTERIAL STENT INSERTION [None]
  - ATHERECTOMY [None]
  - ATRIAL FIBRILLATION [None]
  - CORONARY ARTERY DISEASE [None]
  - ERYTHEMA NODOSUM [None]
  - GASTROENTERITIS [None]
  - HAEMATOMA [None]
  - HERPES SIMPLEX [None]
  - NASOPHARYNGITIS [None]
  - PAIN IN EXTREMITY [None]
  - PERIPHERAL VASCULAR DISORDER [None]
  - TACHYARRHYTHMIA [None]
  - VASCULITIS [None]
